FAERS Safety Report 14494717 (Version 1)
Quarter: 2018Q1

REPORT INFORMATION
  Report Type: Report from Study
  Country: CA (occurrence: CA)
  Receive Date: 20180206
  Receipt Date: 20180206
  Transmission Date: 20180509
  Serious: Yes (Death, Hospitalization)
  Sender: FDA-Public Use
  Company Number: PHHY2014CA030824

PATIENT
  Age: 63 Year
  Sex: Male

DRUGS (4)
  1. SANDOSTATIN [Suspect]
     Active Substance: OCTREOTIDE ACETATE
     Dosage: TEST DOSE, ONCE
     Route: 058
     Dates: start: 20131003, end: 20131003
  2. SANDOSTATIN LAR DEPOT [Suspect]
     Active Substance: OCTREOTIDE ACETATE
     Indication: NEUROENDOCRINE TUMOUR
     Dosage: 30 MG, QMO (EVERY 4 WEEKS)
     Route: 030
     Dates: start: 20140210
  3. SANDOSTATIN LAR DEPOT [Suspect]
     Active Substance: OCTREOTIDE ACETATE
     Dosage: 20 MG, QMO (EVERY 4 WEEKS)
     Route: 030
     Dates: start: 201508
  4. SANDOSTATIN [Suspect]
     Active Substance: OCTREOTIDE ACETATE
     Indication: NEUROENDOCRINE TUMOUR
     Dosage: 50 UG, TEST DOSE ONCE
     Route: 058
     Dates: start: 20130310, end: 20130310

REACTIONS (25)
  - Malignant neoplasm progression [Unknown]
  - Blood pressure decreased [Unknown]
  - Feeling abnormal [Unknown]
  - Gastrointestinal hypermotility [Unknown]
  - Asthenia [Unknown]
  - Therapy non-responder [Unknown]
  - Needle issue [Unknown]
  - Death [Fatal]
  - Blood pressure systolic increased [Unknown]
  - Back pain [Unknown]
  - Pain in extremity [Unknown]
  - Syncope [Unknown]
  - Second primary malignancy [Unknown]
  - Stress [Unknown]
  - Malaise [Recovered/Resolved]
  - Pain [Unknown]
  - Fatigue [Recovering/Resolving]
  - Confusional state [Unknown]
  - Poor quality sleep [Unknown]
  - Vomiting [Recovered/Resolved]
  - Phlebitis [Unknown]
  - Nausea [Recovered/Resolved]
  - Depression [Unknown]
  - Lymphoma [Unknown]
  - Abdominal distension [Unknown]

NARRATIVE: CASE EVENT DATE: 20140505
